FAERS Safety Report 17853020 (Version 2)
Quarter: 2020Q2

REPORT INFORMATION
  Report Type: Spontaneous
  Country: US (occurrence: US)
  Receive Date: 20200602
  Receipt Date: 20200605
  Transmission Date: 20200714
  Serious: No
  Sender: FDA-Public Use
  Company Number: US-ACTELION-A-NJ2020-205638

PATIENT
  Age: 67 Year
  Sex: Male
  Weight: 95.69 kg

DRUGS (2)
  1. OXYGEN. [Concomitant]
     Active Substance: OXYGEN
  2. OPSUMIT [Suspect]
     Active Substance: MACITENTAN
     Indication: PULMONARY ARTERIAL HYPERTENSION
     Dosage: 10 MG, QOD
     Route: 048
     Dates: start: 20200516, end: 20200523

REACTIONS (6)
  - Condition aggravated [Unknown]
  - Hypersensitivity [Unknown]
  - Lacrimation increased [Unknown]
  - Grunting [Recovering/Resolving]
  - Dyspnoea [Unknown]
  - Chest discomfort [Recovering/Resolving]

NARRATIVE: CASE EVENT DATE: 20200516
